FAERS Safety Report 8054933 (Version 7)
Quarter: 2012Q4

REPORT INFORMATION
  Report Type: 
  Country: US (occurrence: US)
  Receive Date: 20110726
  Receipt Date: 20120927
  Transmission Date: 20130627
  Serious: Yes (Hospitalization, Congenital Anomaly)
  Sender: FDA-Public Use
  Company Number: US-GLAXOSMITHKLINE-A0934116A

PATIENT
  Age: 0 Year
  Sex: Female
  Weight: 1.9 kg

DRUGS (8)
  1. PAXIL [Suspect]
     Indication: DEPRESSION
     Dosage: 40MG Per day
     Route: 064
     Dates: start: 2000
  2. PRENATAL VITAMINS [Concomitant]
  3. PREDNISONE [Concomitant]
  4. ZESTORETIC [Concomitant]
  5. INSULIN [Concomitant]
  6. FOLIC ACID [Concomitant]
     Indication: RHEUMATOID ARTHRITIS
     Dosage: 1MG Per day
     Route: 064
     Dates: start: 2000
  7. SIMVASTATIN [Concomitant]
     Indication: BLOOD CHOLESTEROL
     Dosage: 40MG Per day
     Route: 064
     Dates: start: 2000
  8. LANTUS [Concomitant]
     Route: 064

REACTIONS (14)
  - Atrial septal defect [Not Recovered/Not Resolved]
  - Ventricular septal defect [Unknown]
  - Congenital scoliosis [Unknown]
  - Congenital heart valve disorder [Unknown]
  - Ear malformation [Unknown]
  - Patent ductus arteriosus [Unknown]
  - Pulmonary artery stenosis congenital [Unknown]
  - Hemivertebra [Unknown]
  - Rib hypoplasia [Unknown]
  - Plagiocephaly [Unknown]
  - Intraventricular haemorrhage neonatal [Unknown]
  - Deafness [Unknown]
  - Torticollis [Unknown]
  - Foetal exposure during pregnancy [Unknown]
